FAERS Safety Report 7332618-0 (Version None)
Quarter: 2011Q1

REPORT INFORMATION
  Report Type: 
  Country: None (occurrence: None)
  Receive Date: 20110304
  Receipt Date: 20110228
  Transmission Date: 20110831
  Serious: Yes (Hospitalization, Other)
  Sender: FDA-Public Use
  Company Number: US-PFIZER INC-2005092295

PATIENT
  Sex: Female

DRUGS (4)
  1. PROMETHAZINE HYDROCHLORIDE [Suspect]
     Dosage: UNK
     Dates: start: 20011013
  2. AMMONIA [Suspect]
     Dosage: UNK
     Dates: start: 20011013
  3. NEURONTIN [Suspect]
     Dosage: 600 MG, 3X/DAY
     Dates: start: 20010501, end: 20011201
  4. METHADONE HYDROCHLORIDE [Suspect]
     Dosage: UNK
     Dates: start: 20011013

REACTIONS (11)
  - PHYSICAL ASSAULT [None]
  - DEPRESSION [None]
  - SUICIDE ATTEMPT [None]
  - HOSTILITY [None]
  - BRADYPHRENIA [None]
  - INSOMNIA [None]
  - DRUG INEFFECTIVE [None]
  - INTENTIONAL OVERDOSE [None]
  - EXPOSURE TO CONTAMINATED AIR [None]
  - ANGER [None]
  - AGGRESSION [None]
